FAERS Safety Report 9758057 (Version 3)
Quarter: 2014Q1

REPORT INFORMATION
  Report Type: Report from Study
  Country: US (occurrence: US)
  Receive Date: 20131216
  Receipt Date: 20140116
  Transmission Date: 20141002
  Serious: Yes (Hospitalization)
  Sender: FDA-Public Use
  Company Number: US-CELGENEUS-163-C5013-13112817

PATIENT
  Age: 46 Year
  Sex: Female
  Weight: 91 kg

DRUGS (16)
  1. CC-5013 [Suspect]
     Indication: B-CELL LYMPHOMA
     Dosage: 20 MILLIGRAM
     Route: 048
     Dates: start: 20131031, end: 20131112
  2. RITUXIMAB [Suspect]
     Indication: B-CELL LYMPHOMA
     Dosage: 765 MILLIGRAM/SQ. METER
     Route: 041
     Dates: start: 20131030, end: 20131106
  3. CLINDAMYCIN [Suspect]
     Indication: PROPHYLAXIS
     Dosage: 300 MILLIGRAM
     Route: 048
     Dates: start: 20131022, end: 20131102
  4. ALBUTEROL [Concomitant]
     Indication: UPPER RESPIRATORY TRACT INFECTION
     Route: 055
     Dates: start: 1986
  5. ADVAIR [Concomitant]
     Indication: UPPER RESPIRATORY TRACT INFECTION
     Dosage: 100/50
     Route: 055
     Dates: start: 2008
  6. GABAPENTIN [Concomitant]
     Indication: PAIN
     Dosage: 800 MILLIGRAM
     Route: 048
     Dates: start: 2006
  7. METAXALONE [Concomitant]
     Indication: PAIN
     Dosage: 800 MILLIGRAM
     Route: 048
     Dates: start: 2003
  8. CALCIUM WITH D3/POTASSIUM/SODIUM [Concomitant]
     Indication: OSTEOPOROSIS
     Dosage: 500 IU / 40 MCG
     Route: 048
     Dates: start: 2006
  9. CALCIUM WITH D3/POTASSIUM/SODIUM [Concomitant]
     Indication: SUPPLEMENTATION THERAPY
     Route: 065
  10. OMEPRAZOLE [Concomitant]
     Indication: PROPHYLAXIS
     Dosage: 20 MILLIGRAM
     Route: 048
     Dates: start: 2004
  11. EFFEXOR [Concomitant]
     Indication: PAIN
     Dosage: 150 MILLIGRAM
     Route: 048
     Dates: start: 2005
  12. EFFEXOR [Concomitant]
     Indication: ANALGESIC THERAPY
     Route: 065
  13. TRAZODONE [Concomitant]
     Indication: SLEEP DISORDER
     Route: 048
     Dates: start: 2005
  14. ZOLPIDEM [Concomitant]
     Indication: SLEEP DISORDER
     Route: 048
     Dates: start: 2005
  15. VICODIN ES [Concomitant]
     Indication: PAIN
     Dosage: 7.5 MILLIGRAM
     Route: 048
     Dates: start: 2003
  16. ALEVE [Concomitant]
     Indication: HEADACHE
     Dosage: 440 MILLIGRAM
     Route: 048
     Dates: start: 1986

REACTIONS (1)
  - Hypersensitivity vasculitis [Recovered/Resolved]
